FAERS Safety Report 24698076 (Version 1)
Quarter: 2024Q4

REPORT INFORMATION
  Report Type: Report from Study
  Country: US (occurrence: US)
  Receive Date: 20241204
  Receipt Date: 20241204
  Transmission Date: 20250115
  Serious: No
  Sender: ROCHE
  Company Number: US-ROCHE-10000107370

PATIENT
  Age: 52 Year
  Sex: Female

DRUGS (9)
  1. OCREVUS [Suspect]
     Active Substance: OCRELIZUMAB
     Indication: Multiple sclerosis
     Route: 042
  2. ALLEGRA ALLERGY [Concomitant]
     Active Substance: FEXOFENADINE HYDROCHLORIDE
  3. AMOXICILLIN [Concomitant]
     Active Substance: AMOXICILLIN
  4. BENZONATATE [Concomitant]
     Active Substance: BENZONATATE
  5. BUDESONIDE [Concomitant]
     Active Substance: BUDESONIDE
  6. HYDROCHLOROTHIAZID DEXCEL [Concomitant]
  7. IBUPROFEN [Concomitant]
     Active Substance: IBUPROFEN
     Route: 048
  8. LOSARTAN [Concomitant]
     Active Substance: LOSARTAN
  9. PRAVASTATIN [Concomitant]
     Active Substance: PRAVASTATIN

REACTIONS (20)
  - Urinary incontinence [Unknown]
  - Arthralgia [Unknown]
  - Muscle spasms [Unknown]
  - Disturbance in attention [Unknown]
  - Cognitive disorder [Unknown]
  - Vitamin B12 deficiency [Unknown]
  - Somnolence [Unknown]
  - Demyelination [Unknown]
  - Multiple sclerosis [Unknown]
  - Sensitive skin [Unknown]
  - Back pain [Unknown]
  - Joint range of motion decreased [Unknown]
  - Tremor [Unknown]
  - Dysmetria [Unknown]
  - White blood cell count decreased [Unknown]
  - Low density lipoprotein increased [Unknown]
  - Low density lipoprotein increased [Unknown]
  - Low density lipoprotein increased [Unknown]
  - Low density lipoprotein increased [Unknown]
  - Lipoprotein increased [Unknown]
